FAERS Safety Report 7593531-7 (Version None)
Quarter: 2011Q3

REPORT INFORMATION
  Report Type: 
  Country: None (occurrence: None)
  Receive Date: 20110706
  Receipt Date: 20110629
  Transmission Date: 20111222
  Serious: Yes (Life-Threatening, Other)
  Sender: FDA-Public Use
  Company Number: FR-PURDUE-GBR-2011-0008463

PATIENT
  Sex: Male

DRUGS (7)
  1. OXYCODONE HCL [Suspect]
     Indication: PAIN
     Dosage: 30 MG, BID
     Route: 048
     Dates: start: 20100211, end: 20100214
  2. LOSARTAN POTASSIUM AND HYDROCHLOROTHIAZIDE [Concomitant]
     Indication: HYPERTENSION
     Route: 048
  3. ASPIRIN [Concomitant]
     Dosage: 75 MG, DAILY
     Route: 048
  4. SOLUPRED                           /00016201/ [Concomitant]
     Dosage: 40 MG, DAILY
     Route: 048
  5. LASIX [Concomitant]
     Dosage: 80 MG, DAILY
     Route: 048
  6. NEXIUM [Concomitant]
     Dosage: 40 MG, DAILY
     Route: 048
  7. ESCITALOPRAM OXALATE [Concomitant]
     Dosage: 10 MG, DAILY
     Route: 048

REACTIONS (14)
  - SOMNOLENCE [None]
  - ACUTE RESPIRATORY FAILURE [None]
  - HAEMODYNAMIC INSTABILITY [None]
  - DEVICE OCCLUSION [None]
  - HYPERCAPNIC ENCEPHALOPATHY [None]
  - CONFUSIONAL STATE [None]
  - FALL [None]
  - HYPOVENTILATION [None]
  - ATRIAL FIBRILLATION [None]
  - BLOOD PH DECREASED [None]
  - URINARY RETENTION [None]
  - OVERDOSE [None]
  - HAEMATOMA [None]
  - PAIN [None]
